FAERS Safety Report 15974565 (Version 1)
Quarter: 2019Q1

REPORT INFORMATION
  Report Type: Spontaneous
  Country: CN (occurrence: CN)
  Receive Date: 20190218
  Receipt Date: 20190218
  Transmission Date: 20190418
  Serious: Yes (Other)
  Sender: FDA-Public Use
  Company Number: CN-009507513-1902CHN004644

PATIENT
  Age: 16 Year
  Sex: Female
  Weight: 44 kg

DRUGS (2)
  1. INVANZ [Suspect]
     Active Substance: ERTAPENEM SODIUM
     Indication: TYPHOID FEVER
     Dosage: 1 GRAM, QD
     Route: 042
     Dates: start: 20181231, end: 20181231
  2. SODIUM CHLORIDE. [Concomitant]
     Active Substance: SODIUM CHLORIDE
     Indication: TYPHOID FEVER
     Dosage: 100 MILLILITER, QD
     Route: 042
     Dates: start: 20181231, end: 20181231

REACTIONS (3)
  - Nausea [Recovering/Resolving]
  - Chest discomfort [Recovering/Resolving]
  - Dizziness [Recovering/Resolving]

NARRATIVE: CASE EVENT DATE: 20181231
